FAERS Safety Report 13659517 (Version 1)
Quarter: 2017Q2

REPORT INFORMATION
  Report Type: Spontaneous
  Country: CN (occurrence: CN)
  Receive Date: 20170616
  Receipt Date: 20170616
  Transmission Date: 20170830
  Serious: Yes (Hospitalization, Other)
  Sender: FDA-Public Use
  Company Number: CN-GLAXOSMITHKLINE-CN2017GSK088989

PATIENT
  Age: 11 Year
  Sex: Female
  Weight: 31 kg

DRUGS (3)
  1. LAMOTRIGINE. [Suspect]
     Active Substance: LAMOTRIGINE
     Dosage: UNK, BID
  2. VALPROATE [Concomitant]
     Active Substance: VALPROIC ACID
     Indication: EPILEPSY
  3. LAMOTRIGINE. [Suspect]
     Active Substance: LAMOTRIGINE
     Indication: EPILEPSY
     Dosage: 12.5 MG, BID

REACTIONS (7)
  - Skin exfoliation [Unknown]
  - Rash maculo-papular [Unknown]
  - Tongue ulceration [Unknown]
  - Upper respiratory tract infection [Unknown]
  - Anaphylactic reaction [Recovered/Resolved]
  - Rash [Unknown]
  - Oropharyngeal pain [Unknown]
